FAERS Safety Report 5204730-3 (Version None)
Quarter: 2007Q1

REPORT INFORMATION
  Report Type: 
  Country: None (occurrence: None)
  Receive Date: 20070110
  Receipt Date: 20060628
  Transmission Date: 20070707
  Serious: Yes (Hospitalization)
  Sender: FDA-Public Use
  Company Number: US-BRISTOL-MYERS SQUIBB COMPANY-13427943

PATIENT
  Age: 35 Year
  Sex: Male

DRUGS (4)
  1. ABILIFY [Suspect]
     Indication: MAJOR DEPRESSION
     Route: 048
     Dates: start: 20050801
  2. ABILIFY [Suspect]
     Indication: SUICIDAL IDEATION
     Route: 048
     Dates: start: 20050801
  3. WELLBUTRIN [Concomitant]
  4. PAXIL [Concomitant]

REACTIONS (3)
  - DEPRESSION [None]
  - SUICIDAL IDEATION [None]
  - TARDIVE DYSKINESIA [None]
